FAERS Safety Report 4901121-7 (Version None)
Quarter: 2006Q1

REPORT INFORMATION
  Report Type: 
  Country: None (occurrence: None)
  Receive Date: 20060203
  Receipt Date: 20060129
  Transmission Date: 20060701
  Serious: Yes (Hospitalization)
  Sender: FDA-Public Use
  Company Number: BR-NOVOPROD-250525

PATIENT
  Sex: Female

DRUGS (2)
  1. NOVOSEVEN [Suspect]
     Indication: PROPHYLAXIS
     Dosage: .09 MG/KG, UNK
     Dates: start: 20060125, end: 20060127
  2. AMINOCAPROIC ACID [Concomitant]
     Indication: PROPHYLAXIS

REACTIONS (5)
  - HEADACHE [None]
  - LACUNAR INFARCTION [None]
  - NAUSEA [None]
  - VISION BLURRED [None]
  - VOMITING [None]
